FAERS Safety Report 7226004-1 (Version None)
Quarter: 2011Q1

REPORT INFORMATION
  Report Type: 
  Country: None (occurrence: None)
  Receive Date: 20110113
  Receipt Date: 20110112
  Transmission Date: 20110831
  Serious: Yes (Hospitalization)
  Sender: FDA-Public Use
  Company Number: JP-ABBOTT-10P-087-0683450-00

PATIENT
  Sex: Male
  Weight: 41.3 kg

DRUGS (3)
  1. BIOFERMIN [Concomitant]
     Indication: PRODUCT USED FOR UNKNOWN INDICATION
     Dates: start: 20101015, end: 20101020
  2. CEFZON [Suspect]
     Indication: NASOPHARYNGITIS
     Route: 048
     Dates: start: 20101015, end: 20101020
  3. CEFZON [Suspect]

REACTIONS (2)
  - RASH [None]
  - PYREXIA [None]
